FAERS Safety Report 8183674-1 (Version None)
Quarter: 2012Q1

REPORT INFORMATION
  Report Type: 
  Country: None (occurrence: None)
  Receive Date: 20120305
  Receipt Date: 20120224
  Transmission Date: 20120608
  Serious: Yes (Other)
  Sender: FDA-Public Use
  Company Number: PHHY2011BR111313

PATIENT
  Sex: Male

DRUGS (1)
  1. EXFORGE [Suspect]
     Indication: HYPERTENSION
     Dosage: 1 TABLET (80/5 MG) IN THE MORNING
     Dates: start: 20090101

REACTIONS (3)
  - ARTERIAL OCCLUSIVE DISEASE [None]
  - DIABETES MELLITUS [None]
  - FATIGUE [None]
